FAERS Safety Report 12461750 (Version 2)
Quarter: 2016Q2

REPORT INFORMATION
  Report Type: Spontaneous
  Country: BR (occurrence: BR)
  Receive Date: 20160613
  Receipt Date: 20160621
  Transmission Date: 20160815
  Serious: Yes (Other)
  Sender: FDA-Public Use
  Company Number: BR-PFIZER INC-2016291340

PATIENT
  Sex: Female

DRUGS (4)
  1. DONAREN RETARD [Interacting]
     Active Substance: TRAZODONE HYDROCHLORIDE
     Dosage: 150 MG, 2X/DAY (IN THE MORNING AND AT NIGHT)
  2. FRONTAL [Suspect]
     Active Substance: ALPRAZOLAM
     Dosage: 1 MG, 2X/DAY (IN THE MORNING AND AT NIGHT)
  3. FRONTAL [Interacting]
     Active Substance: ALPRAZOLAM
     Dosage: 0.5 MG, 2X/DAY (IN THE MORNING AND AT NIGHT)
     Dates: start: 20160523
  4. AMATO [Interacting]
     Active Substance: TOPIRAMATE
     Dosage: 50 MG, 1X/DAY (AT NIGHT)

REACTIONS (9)
  - Nausea [Not Recovered/Not Resolved]
  - Gastritis [Not Recovered/Not Resolved]
  - Abdominal pain upper [Not Recovered/Not Resolved]
  - Drug interaction [Unknown]
  - Palpitations [Unknown]
  - Chromaturia [Unknown]
  - Haematemesis [Unknown]
  - Headache [Unknown]
  - Anxiety [Unknown]

NARRATIVE: CASE EVENT DATE: 20160607
